FAERS Safety Report 12020267 (Version 3)
Quarter: 2018Q4

REPORT INFORMATION
  Report Type: Report from Study
  Country: PT (occurrence: PT)
  Receive Date: 20160206
  Receipt Date: 20181022
  Transmission Date: 20190204
  Serious: Yes (Death, Other)
  Sender: FDA-Public Use
  Company Number: PT-ACCORD-037601

PATIENT
  Age: 56 Year
  Sex: Male

DRUGS (5)
  1. MYCOPHENOLIC ACID. [Suspect]
     Active Substance: MYCOPHENOLIC ACID
     Indication: RENAL TRANSPLANT
     Dosage: REDUCTION OF IMMUNOSUPRESSIVE AGENTS
  2. PREDNISONE. [Suspect]
     Active Substance: PREDNISONE
     Indication: RENAL TRANSPLANT
  3. BASILIXIMAB [Concomitant]
     Active Substance: BASILIXIMAB
  4. EVEROLIMUS. [Suspect]
     Active Substance: EVEROLIMUS
     Indication: RENAL TRANSPLANT
     Dosage: REDUCTION OF IMMUNOSUPRESSIVE AGENTS
  5. TACROLIMUS. [Suspect]
     Active Substance: TACROLIMUS
     Indication: RENAL TRANSPLANT
     Dosage: REDUCTION OF IMMUNOSUPRESSIVE AGENTS

REACTIONS (4)
  - Kaposi^s sarcoma [Fatal]
  - Multiple organ dysfunction syndrome [Fatal]
  - Kidney fibrosis [Unknown]
  - Renal tubular atrophy [Unknown]
